FAERS Safety Report 9339755 (Version 1)
Quarter: 2013Q2

REPORT INFORMATION
  Report Type: Spontaneous
  Country: US (occurrence: None)
  Receive Date: 20130607
  Receipt Date: 20130607
  Transmission Date: 20140414
  Serious: Yes (Life-Threatening, Hospitalization)
  Sender: FDA-Public Use
  Company Number: None

PATIENT
  Age: 55 Year
  Sex: Male
  Weight: 72.12 kg

DRUGS (2)
  1. RIBAVIRIN [Suspect]
     Indication: HEPATITIS C
     Route: 058
     Dates: start: 20130418, end: 20130521
  2. INCIVEK [Suspect]
     Indication: HEPATITIS C
     Dosage: 3CAP AM, 2CAP PM
     Route: 048
     Dates: start: 20130418, end: 20130521

REACTIONS (3)
  - Respiratory arrest [None]
  - Loss of consciousness [None]
  - Pneumothorax [None]
